FAERS Safety Report 13315125 (Version 2)
Quarter: 2017Q2

REPORT INFORMATION
  Report Type: Report from Study
  Country: None (occurrence: IL)
  Receive Date: 20170309
  Receipt Date: 20170413
  Transmission Date: 20170830
  Serious: Yes (Life-Threatening, Hospitalization, Other)
  Sender: FDA-Public Use
  Company Number: IL-ABBVIE-17K-082-1897052-00

PATIENT
  Age: 42 Year
  Sex: Female

DRUGS (2)
  1. HUMIRA [Suspect]
     Active Substance: ADALIMUMAB
     Indication: CROHN^S DISEASE
     Route: 058
     Dates: start: 20170117, end: 20170224
  2. COUMADIN [Concomitant]
     Active Substance: WARFARIN SODIUM
     Indication: ANTIPHOSPHOLIPID SYNDROME
     Route: 048

REACTIONS (9)
  - Haemoglobin decreased [Unknown]
  - Pain in jaw [Unknown]
  - Haematocrit decreased [Unknown]
  - Platelet count increased [Unknown]
  - Myocardial infarction [Recovering/Resolving]
  - Sinus rhythm [Unknown]
  - Coronary artery thrombosis [Unknown]
  - Alanine aminotransferase increased [Unknown]
  - Pain in extremity [Unknown]

NARRATIVE: CASE EVENT DATE: 2017
